FAERS Safety Report 9249024 (Version 1)
Quarter: 2013Q1

REPORT INFORMATION
  Report Type: Spontaneous
  Country: US (occurrence: None)
  Receive Date: 20130305
  Receipt Date: 20130305
  Transmission Date: 20140127
  Serious: Yes (Other)
  Sender: FDA-Public Use
  Company Number: 163-21880-12061827

PATIENT
  Age: 70 Year
  Sex: Female

DRUGS (7)
  1. REVLIMID [Suspect]
     Indication: PLASMA CELL MYELOMA
     Route: 048
     Dates: start: 20120515, end: 20120528
  2. CLINDAMYCIN(CLINDAMYCIN) (CAPSULES) [Concomitant]
  3. BORTEZOMIB(BORTEZOMIB) (INJECTION) [Concomitant]
  4. DEXAMETHASONE(DEXAMETHASONE) (4 MILLIGRAM, UNKNOWN) [Concomitant]
  5. ALLOPURINOL(ALLOPURINOL) (TABLETS) [Concomitant]
  6. GABAPENTIN(GABAPENTIN) (TABLETS) [Concomitant]
  7. PERCOCET(OXYCOCET) (TABLETS) [Concomitant]

REACTIONS (3)
  - Rash pruritic [None]
  - Rash erythematous [None]
  - Oedema peripheral [None]
